FAERS Safety Report 14274176 (Version 1)
Quarter: 2017Q4

REPORT INFORMATION
  Report Type: Spontaneous
  Country: US (occurrence: US)
  Receive Date: 20171211
  Receipt Date: 20171211
  Transmission Date: 20180321
  Serious: Yes (Disabling, Other)
  Sender: FDA-Public Use
  Company Number: US-OTSUKA-2016_030530

PATIENT
  Sex: Female

DRUGS (4)
  1. ABILIFY [Suspect]
     Active Substance: ARIPIPRAZOLE
     Indication: MAJOR DEPRESSION
     Dosage: 1 DF, UNK
     Route: 065
     Dates: start: 2009, end: 201603
  2. ABILIFY [Suspect]
     Active Substance: ARIPIPRAZOLE
     Indication: SOCIAL ANXIETY DISORDER
     Dosage: UNK
     Route: 065
  3. ABILIFY [Suspect]
     Active Substance: ARIPIPRAZOLE
     Indication: POST-TRAUMATIC STRESS DISORDER
     Dosage: UNK
     Route: 065
  4. ABILIFY [Suspect]
     Active Substance: ARIPIPRAZOLE
     Indication: ANXIETY
     Dosage: UNK
     Route: 065

REACTIONS (17)
  - Disability [Unknown]
  - Anxiety [Unknown]
  - Condition aggravated [Unknown]
  - Suicide attempt [Unknown]
  - Obsessive-compulsive disorder [Unknown]
  - Impulsive behaviour [Unknown]
  - Injury [Unknown]
  - Psychosexual disorder [Unknown]
  - Trichotillomania [Unknown]
  - Dependence [Unknown]
  - Excoriation [Unknown]
  - Suicidal ideation [Unknown]
  - Shoplifting [Unknown]
  - Theft [Unknown]
  - Emotional distress [Unknown]
  - Pain [Unknown]
  - Gambling disorder [Unknown]

NARRATIVE: CASE EVENT DATE: 2014
